FAERS Safety Report 7387006-8 (Version None)
Quarter: 2011Q1

REPORT INFORMATION
  Report Type: 
  Country: None (occurrence: None)
  Receive Date: 20110322
  Receipt Date: 20110308
  Transmission Date: 20110831
  Serious: Yes (Other)
  Sender: FDA-Public Use
  Company Number: CIP11000627

PATIENT
  Age: 70 Year
  Sex: Female

DRUGS (1)
  1. RISEDRONATE SODIUM [Suspect]
     Dosage: 2.5 MG DAILY, ORAL
     Route: 048
     Dates: start: 20020601, end: 20050101

REACTIONS (4)
  - FEMUR FRACTURE [None]
  - PATHOLOGICAL FRACTURE [None]
  - FALL [None]
  - BALANCE DISORDER [None]
